FAERS Safety Report 6342646-X (Version None)
Quarter: 2009Q3

REPORT INFORMATION
  Report Type: 
  Country: None (occurrence: None)
  Receive Date: 20090903
  Receipt Date: 20090828
  Transmission Date: 20100115
  Serious: Yes (Other)
  Sender: FDA-Public Use
  Company Number: 2009-197901-NL

PATIENT
  Age: 77 Year
  Sex: Male
  Weight: 78 kg

DRUGS (13)
  1. ESLAX (ROCURONIUM BROMIDE) [Suspect]
     Indication: GENERAL ANAESTHESIA
     Dosage: 50 MG; ONCE; IV;  131 MG; IV
     Route: 042
     Dates: start: 20090529, end: 20090529
  2. ESLAX (ROCURONIUM BROMIDE) [Suspect]
     Indication: NEUROMUSCULAR BLOCKING THERAPY
     Dosage: 50 MG; ONCE; IV;  131 MG; IV
     Route: 042
     Dates: start: 20090529, end: 20090529
  3. ESLAX (ROCURONIUM BROMIDE) [Suspect]
     Indication: GENERAL ANAESTHESIA
     Dosage: 50 MG; ONCE; IV;  131 MG; IV
     Route: 042
     Dates: start: 20090529, end: 20090529
  4. ESLAX (ROCURONIUM BROMIDE) [Suspect]
     Indication: NEUROMUSCULAR BLOCKING THERAPY
     Dosage: 50 MG; ONCE; IV;  131 MG; IV
     Route: 042
     Dates: start: 20090529, end: 20090529
  5. PROPOFOL [Concomitant]
  6. WYSTAL [Concomitant]
  7. FENTANYL [Concomitant]
  8. EFFORTIL [Concomitant]
  9. ROPION [Concomitant]
  10. REMIFENTANIL HYDROCHLORIDE [Concomitant]
  11. INSULIN [Concomitant]
  12. LORFAN [Concomitant]
  13. NICARPINE [Concomitant]

REACTIONS (4)
  - AIRWAY COMPLICATION OF ANAESTHESIA [None]
  - DRUG LEVEL INCREASED [None]
  - HYPOTONIA [None]
  - METABOLIC DISORDER [None]
